FAERS Safety Report 10027796 (Version 1)
Quarter: 2014Q1

REPORT INFORMATION
  Report Type: Spontaneous
  Country: US (occurrence: None)
  Receive Date: 20140304
  Receipt Date: 20140304
  Transmission Date: 20141002
  Serious: Yes (Hospitalization)
  Sender: FDA-Public Use
  Company Number: 388733

PATIENT
  Age: 79 Year
  Sex: Male

DRUGS (5)
  1. NOVOLIN 70/30 [Suspect]
     Indication: DIABETES MELLITUS
     Route: 058
     Dates: end: 201302
  2. SIMVASTATIN (SIMVASTATIN) [Concomitant]
  3. VALSARTAN (VALSARTAN) [Concomitant]
  4. ASPIRIN (ACETYLSALICYLIC ACID) [Concomitant]
  5. CALCIUM WITH VITAMIN D [Concomitant]

REACTIONS (1)
  - Hypoglycaemic unconsciousness [None]
